FAERS Safety Report 4897675-X (Version None)
Quarter: 2006Q1

REPORT INFORMATION
  Report Type: 
  Country: None (occurrence: None)
  Receive Date: 20060130
  Receipt Date: 20060117
  Transmission Date: 20060701
  Serious: Yes (Other)
  Sender: FDA-Public Use
  Company Number: 2005164322

PATIENT
  Sex: Male
  Weight: 106.5953 kg

DRUGS (4)
  1. VIAGRA [Suspect]
     Indication: ERECTILE DYSFUNCTION
     Dosage: 25 MG (25 MG, 1 AS NECESSARY), ORAL
     Route: 048
     Dates: end: 20050101
  2. TOPROL-XL [Concomitant]
  3. CRESTOR [Concomitant]
  4. LOTREL [Concomitant]

REACTIONS (1)
  - CARDIAC VALVE DISEASE [None]
